FAERS Safety Report 24147338 (Version 1)
Quarter: 2024Q3

REPORT INFORMATION
  Report Type: Report from Study
  Country: US (occurrence: US)
  Receive Date: 20240729
  Receipt Date: 20240729
  Transmission Date: 20241016
  Serious: Yes (Other)
  Sender: ALNYLAM PHARMACEUTICALS
  Company Number: US-ALNYLAM PHARMACEUTICALS, INC.-ALN-2024-004098

PATIENT

DRUGS (1)
  1. OXLUMO [Suspect]
     Active Substance: LUMASIRAN
     Indication: Product used for unknown indication
     Dosage: 3 MILLIGRAM/KILOGRAM 240.0 (94.5 MG/0.5 ML), Q3M
     Route: 058
     Dates: start: 20210618, end: 20210618

REACTIONS (2)
  - Kidney infection [Unknown]
  - Amnesia [Unknown]
